FAERS Safety Report 7831017-2 (Version None)
Quarter: 2011Q4

REPORT INFORMATION
  Report Type: 
  Country: None (occurrence: None)
  Receive Date: 20111021
  Receipt Date: 20111017
  Transmission Date: 20120403
  Serious: Yes (Death)
  Sender: FDA-Public Use
  Company Number: VE-PFIZER INC-2011242192

PATIENT
  Age: 74 Year
  Sex: Male

DRUGS (1)
  1. LIPITOR [Suspect]
     Indication: HYPERCHOLESTEROLAEMIA
     Dosage: ONE TABLET DAILY
     Route: 048
     Dates: start: 20080101, end: 20110101

REACTIONS (1)
  - INFARCTION [None]
